FAERS Safety Report 6033849-2 (Version None)
Quarter: 2009Q1

REPORT INFORMATION
  Report Type: 
  Country: None (occurrence: None)
  Receive Date: 20090109
  Receipt Date: 20090109
  Transmission Date: 20090719
  Serious: Yes (Other)
  Sender: FDA-Public Use
  Company Number: None

PATIENT
  Sex: Female
  Weight: 74.8435 kg

DRUGS (6)
  1. ASMANEX TWISTHALER [Suspect]
     Indication: ASTHMA
     Dosage: 220 MCG 1 PUFF TWO TIMES A DAY INHALATION
     Route: 055
     Dates: start: 20071203, end: 20080422
  2. ASMANEX TWISTHALER [Suspect]
     Indication: SPIROMETRY ABNORMAL
     Dosage: 220 MCG 1 PUFF TWO TIMES A DAY INHALATION
     Route: 055
     Dates: start: 20071203, end: 20080422
  3. ALBUTEROL MOL [Concomitant]
  4. LORATADINE [Concomitant]
  5. NASONEX [Concomitant]
  6. ADVAIR DISKUS 100/50 [Concomitant]

REACTIONS (1)
  - HEADACHE [None]
